FAERS Safety Report 8213054-1 (Version None)
Quarter: 2012Q1

REPORT INFORMATION
  Report Type: 
  Country: None (occurrence: None)
  Receive Date: 20120315
  Receipt Date: 20120313
  Transmission Date: 20120608
  Serious: Yes (Other)
  Sender: FDA-Public Use
  Company Number: US-PFIZER INC-2012067296

PATIENT
  Age: 48 Year
  Sex: Male
  Weight: 107 kg

DRUGS (2)
  1. LYRICA [Suspect]
     Indication: DIABETIC NEUROPATHY
     Dosage: 150 MG, 2X/DAY
     Dates: end: 20120201
  2. INSULIN [Concomitant]
     Indication: DIABETES MELLITUS
     Dosage: UNK

REACTIONS (4)
  - CONVULSION [None]
  - NAUSEA [None]
  - VOMITING [None]
  - DEPRESSION [None]
